FAERS Safety Report 19952838 (Version 1)
Quarter: 2021Q4

REPORT INFORMATION
  Report Type: Spontaneous
  Country: US (occurrence: US)
  Receive Date: 20211009
  Receipt Date: 20211009
  Transmission Date: 20220304
  Serious: Yes (Hospitalization)
  Sender: FDA-Public Use
  Company Number: None

PATIENT
  Age: 17 Year
  Sex: Male
  Weight: 55.6 kg

DRUGS (4)
  1. CYTARABINE [Suspect]
     Active Substance: CYTARABINE
     Dates: end: 20211003
  2. DAUNORUBICIN [Suspect]
     Active Substance: DAUNORUBICIN
     Dates: end: 20211004
  3. PREDNISOLONE [Suspect]
     Active Substance: PREDNISOLONE
     Dates: end: 20211005
  4. VINCRISTINE SULFATE [Suspect]
     Active Substance: VINCRISTINE SULFATE
     Dates: end: 20211004

REACTIONS (8)
  - Blood phosphorus increased [None]
  - Blood lactate dehydrogenase increased [None]
  - Blood creatine increased [None]
  - Tumour lysis syndrome [None]
  - Haemodialysis [None]
  - Renal failure [None]
  - Respiratory distress [None]
  - Pleural effusion [None]

NARRATIVE: CASE EVENT DATE: 20211005
